FAERS Safety Report 21898311 (Version 2)
Quarter: 2023Q1

REPORT INFORMATION
  Report Type: Report from Study
  Country: US (occurrence: US)
  Receive Date: 20230123
  Receipt Date: 20230322
  Transmission Date: 20230417
  Serious: Yes (Hospitalization)
  Sender: FDA-Public Use
  Company Number: US-PFIZER INC-PV202300011377

PATIENT
  Age: 85 Year
  Sex: Female

DRUGS (5)
  1. VYNDAMAX [Suspect]
     Active Substance: TAFAMIDIS
     Dosage: 61 MG, DAILY
     Route: 048
  2. VYNDAMAX [Suspect]
     Active Substance: TAFAMIDIS
     Dosage: 61 MG, DAILY
     Route: 048
  3. ELIQUIS [Concomitant]
     Active Substance: APIXABAN
     Dosage: UNK
  4. LIPITOR [Concomitant]
     Active Substance: ATORVASTATIN CALCIUM
     Dosage: UNK
  5. LYRICA [Concomitant]
     Active Substance: PREGABALIN
     Dosage: UNK

REACTIONS (2)
  - Heart rate decreased [Recovering/Resolving]
  - COVID-19 [Recovering/Resolving]

NARRATIVE: CASE EVENT DATE: 20230101
